FAERS Safety Report 4379387-4 (Version None)
Quarter: 2004Q2

REPORT INFORMATION
  Report Type: 
  Country: None (occurrence: None)
  Receive Date: 20040617
  Receipt Date: 20040607
  Transmission Date: 20050107
  Serious: Yes (Other)
  Sender: FDA-Public Use
  Company Number: CA-JNJFOC-20040602240

PATIENT
  Sex: Male
  Weight: 99.79 kg

DRUGS (13)
  1. REMICADE [Suspect]
     Route: 042
  2. REMICADE [Suspect]
     Indication: RHEUMATOID ARTHRITIS
     Route: 042
  3. METHOTREXATE [Concomitant]
     Route: 049
  4. PREDNISONE [Concomitant]
     Route: 049
  5. FOLIC ACID [Concomitant]
     Route: 049
  6. PLAQUENIL [Concomitant]
     Route: 049
  7. MONITAN [Concomitant]
     Route: 049
  8. LOSEC [Concomitant]
  9. VIOXX [Concomitant]
     Dosage: 25 MG AT BEDTIME
  10. NORVASC [Concomitant]
     Dosage: 500 MG, HALF TABLET IN MORNING
  11. AMITRIPTYLINE HCL [Concomitant]
     Dosage: 2 TABLETS AT BEDTIME
  12. APO-HYDRO [Concomitant]
  13. NEXIUM [Concomitant]

REACTIONS (1)
  - HODGKIN'S DISEASE [None]
